FAERS Safety Report 7486334-5 (Version None)
Quarter: 2011Q2

REPORT INFORMATION
  Report Type: 
  Country: None (occurrence: None)
  Receive Date: 20110517
  Receipt Date: 20110506
  Transmission Date: 20111010
  Serious: Yes (Congenital Anomaly, Other)
  Sender: FDA-Public Use
  Company Number: PHHY2011US38201

PATIENT
  Age: 3 Month
  Sex: Male

DRUGS (2)
  1. METHOTREXATE [Suspect]
     Indication: ECTOPIC PREGNANCY TERMINATION
     Dosage: UNK UKN, UNK
     Route: 064
  2. ANAESTHETICS [Concomitant]
     Dosage: UNK UKN, UNK

REACTIONS (21)
  - NERVOUS SYSTEM DISORDER [None]
  - OBSTRUCTIVE AIRWAYS DISORDER [None]
  - DYSPHAGIA [None]
  - FALLOT'S TETRALOGY [None]
  - PREMATURE BABY [None]
  - RENAL HYPERTENSION [None]
  - CHYLOTHORAX [None]
  - RENAL FAILURE [None]
  - MICROGNATHIA [None]
  - ECTOPIC KIDNEY [None]
  - BRONCHOPULMONARY DYSPLASIA [None]
  - DEAFNESS [None]
  - INGUINAL HERNIA [None]
  - DRUG EXPOSURE DURING PREGNANCY [None]
  - CYANOSIS [None]
  - FOETAL METHOTREXATE SYNDROME [None]
  - POLYDACTYLY [None]
  - PERICARDIAL EFFUSION [None]
  - CONVULSION [None]
  - TALIPES [None]
  - RETINOPATHY OF PREMATURITY [None]
